FAERS Safety Report 15436537 (Version 2)
Quarter: 2018Q4

REPORT INFORMATION
  Report Type: Spontaneous
  Country: ID (occurrence: ID)
  Receive Date: 20180927
  Receipt Date: 20181002
  Transmission Date: 20190204
  Serious: Yes (Death, Hospitalization)
  Sender: FDA-Public Use
  Company Number: ID-PFIZER INC-2018387102

PATIENT

DRUGS (5)
  1. GAMMARAAS [Concomitant]
     Dosage: UNK
  2. PIPERACILLIN/TAZOBACTAM [Suspect]
     Active Substance: PIPERACILLIN SODIUM\TAZOBACTAM SODIUM
     Indication: PNEUMONIA
     Dosage: UNK
  3. MEROPENEM. [Suspect]
     Active Substance: MEROPENEM
     Indication: PNEUMONIA
     Dosage: UNK
  4. TYGACIL [Suspect]
     Active Substance: TIGECYCLINE
     Dosage: 50 MG, 2X/DAY
  5. AMIKACIN. [Suspect]
     Active Substance: AMIKACIN
     Indication: PNEUMONIA
     Dosage: UNK

REACTIONS (6)
  - Pyrexia [Unknown]
  - Disease recurrence [Unknown]
  - Blood creatinine increased [Recovering/Resolving]
  - Pulmonary mass [Unknown]
  - Condition aggravated [Recovering/Resolving]
  - Concomitant disease aggravated [Fatal]
